FAERS Safety Report 16694482 (Version 2)
Quarter: 2019Q3

REPORT INFORMATION
  Report Type: Spontaneous
  Country: DE (occurrence: DE)
  Receive Date: 20190812
  Receipt Date: 20190930
  Transmission Date: 20191004
  Serious: No
  Sender: FDA-Public Use
  Company Number: DE-OTSUKA-2019_028677

PATIENT
  Age: 17 Year
  Sex: Female

DRUGS (2)
  1. METHYLPREDNISOLONE. [Concomitant]
     Active Substance: METHYLPREDNISOLONE
     Indication: PSYCHIATRIC SYMPTOM
     Dosage: 1 G, QD
     Route: 042
  2. ARIPIPRAZOLE. [Suspect]
     Active Substance: ARIPIPRAZOLE
     Indication: ENCEPHALITIS AUTOIMMUNE
     Dosage: UNK
     Route: 065

REACTIONS (1)
  - No adverse event [Unknown]
